FAERS Safety Report 5068224-0 (Version None)
Quarter: 2006Q3

REPORT INFORMATION
  Report Type: 
  Country: None (occurrence: None)
  Receive Date: 20060802
  Receipt Date: 20050609
  Transmission Date: 20061208
  Serious: No
  Sender: FDA-Public Use
  Company Number: US-BRISTOL-MYERS SQUIBB COMPANY-12998704

PATIENT
  Age: 57 Year
  Sex: Male
  Weight: 102 kg

DRUGS (10)
  1. COUMADIN [Suspect]
     Indication: ATRIAL FIBRILLATION
  2. ALBUTEROL SPIROS [Concomitant]
  3. DILTIAZEM HCL [Concomitant]
  4. DOXAZOSIN [Concomitant]
     Dates: start: 20050531
  5. LEVOXYL [Concomitant]
  6. LORATADINE [Concomitant]
  7. PREDNISONE [Concomitant]
  8. QVAR 40 [Concomitant]
  9. TEMAZEPAM [Concomitant]
  10. TRAMADOL HCL [Concomitant]

REACTIONS (2)
  - EPISTAXIS [None]
  - HAEMOPTYSIS [None]
